FAERS Safety Report 10645872 (Version 4)
Quarter: 2015Q1

REPORT INFORMATION
  Report Type: Spontaneous
  Country: US (occurrence: US)
  Receive Date: 20141211
  Receipt Date: 20150218
  Transmission Date: 20150720
  Serious: Yes (Hospitalization, Other)
  Sender: FDA-Public Use
  Company Number: US-UNITED THERAPEUTICS-UNT-2014-011356

PATIENT
  Age: 57 Year
  Sex: Female
  Weight: 54.42 kg

DRUGS (6)
  1. TYVASO [Suspect]
     Active Substance: TREPROSTINIL
     Dosage: 18-54 UG, QID
     Dates: start: 20140509, end: 20150128
  2. TYVASO [Suspect]
     Active Substance: TREPROSTINIL
     Indication: PULMONARY ARTERIAL HYPERTENSION
     Dosage: 18-54 ?G, QID
     Dates: start: 20140509, end: 20150128
  3. TYVASO [Suspect]
     Active Substance: TREPROSTINIL
     Dosage: 18-54 ?G, QID
     Dates: start: 20140509, end: 20150128
  4. NORVAC [Concomitant]
     Indication: PRODUCT USED FOR UNKNOWN INDICATION
  5. REVATIO [Concomitant]
     Active Substance: SILDENAFIL CITRATE
     Indication: PRODUCT USED FOR UNKNOWN INDICATION
     Dosage: 40 MG, TID
  6. TYVASO [Suspect]
     Active Substance: TREPROSTINIL
     Indication: PULMONARY HYPERTENSION
     Dosage: 18-54 ?G, QID
     Dates: start: 20140507, end: 20150128

REACTIONS (10)
  - Pulmonary arterial hypertension [Unknown]
  - Nasopharyngitis [Unknown]
  - Constipation [Unknown]
  - Diarrhoea [Unknown]
  - Oedema peripheral [Unknown]
  - Bronchitis [Unknown]
  - Enteritis [Unknown]
  - Headache [Unknown]
  - Oesophageal ulcer [Unknown]
  - Colitis [Unknown]

NARRATIVE: CASE EVENT DATE: 2014
